FAERS Safety Report 5785773-8 (Version None)
Quarter: 2008Q2

REPORT INFORMATION
  Report Type: 
  Country: None (occurrence: None)
  Receive Date: 20080605
  Receipt Date: 20080324
  Transmission Date: 20081010
  Serious: No
  Sender: FDA-Public Use
  Company Number: A0711479A

PATIENT
  Sex: Female

DRUGS (1)
  1. ALLI [Suspect]
     Dates: end: 20080220

REACTIONS (4)
  - BACK PAIN [None]
  - BREAST PAIN [None]
  - FAECES DISCOLOURED [None]
  - PHARMACEUTICAL PRODUCT COMPLAINT [None]
